FAERS Safety Report 4486570-6 (Version None)
Quarter: 2004Q4

REPORT INFORMATION
  Report Type: 
  Country: None (occurrence: None)
  Receive Date: 20041022
  Receipt Date: 20040923
  Transmission Date: 20050328
  Serious: Yes (Death, Other)
  Sender: FDA-Public Use
  Company Number: 04-10-1456

PATIENT
  Age: 84 Year
  Sex: Male

DRUGS (9)
  1. LISINOPRIL TABLETS- IPI [Suspect]
     Dosage: ORAL
     Route: 048
  2. METFORMIN [Suspect]
     Indication: DIABETES MELLITUS NON-INSULIN-DEPENDENT
     Dosage: 1000MG BD ORAL
     Route: 048
  3. ROSIGLITAZONE MALEATE [Suspect]
     Dosage: ORAL
     Route: 048
     Dates: start: 20000101
  4. ASPIRIN [Concomitant]
  5. DOTHIEPIN HYDROCHLORIDE [Concomitant]
  6. FLUOXETINE [Concomitant]
  7. GLICLAZIDE [Concomitant]
  8. LEVOTHYROXINE SODIUM [Concomitant]
  9. RABEPRAZOLE SODIUM [Concomitant]

REACTIONS (16)
  - BLOOD CREATINE INCREASED [None]
  - BUNDLE BRANCH BLOCK RIGHT [None]
  - CARDIAC FAILURE CONGESTIVE [None]
  - COAGULOPATHY [None]
  - DYSPNOEA [None]
  - HEPATOCELLULAR DAMAGE [None]
  - HEPATOMEGALY [None]
  - ISCHAEMIC HEPATITIS [None]
  - JOINT CREPITATION [None]
  - LACTIC ACIDOSIS [None]
  - LOWER RESPIRATORY TRACT INFECTION [None]
  - MALAISE [None]
  - OEDEMA PERIPHERAL [None]
  - PLEURAL EFFUSION [None]
  - RENAL IMPAIRMENT [None]
  - TACHYPNOEA [None]
